FAERS Safety Report 6063094-6 (Version None)
Quarter: 2009Q1

REPORT INFORMATION
  Report Type: 
  Country: None (occurrence: None)
  Receive Date: 20090203
  Receipt Date: 20090123
  Transmission Date: 20090719
  Serious: Yes (Other)
  Sender: FDA-Public Use
  Company Number: PHEH2009US01137

PATIENT
  Sex: Female

DRUGS (2)
  1. ZOMETA [Suspect]
  2. AREDIA [Suspect]

REACTIONS (6)
  - EXCESSIVE GRANULATION TISSUE [None]
  - HYPERPLASIA [None]
  - OSTEOMYELITIS [None]
  - PALATAL OEDEMA [None]
  - PRIMARY SEQUESTRUM [None]
  - SOFT TISSUE INFLAMMATION [None]
